FAERS Safety Report 9393454 (Version 2)
Quarter: 2013Q4

REPORT INFORMATION
  Report Type: Spontaneous
  Country: GB (occurrence: GB)
  Receive Date: 20130710
  Receipt Date: 20131127
  Transmission Date: 20140711
  Serious: Yes (Death, Other)
  Sender: FDA-Public Use
  Company Number: GB-PFIZER INC-2005035133

PATIENT
  Age: 42 Year
  Sex: Female

DRUGS (6)
  1. IBUPROFEN [Suspect]
     Dosage: UNK
     Route: 065
  2. OXAZEPAM [Suspect]
     Dosage: TAKEN INTERMITTENTLY
     Route: 065
  3. SUBUTEX [Suspect]
     Dosage: 4 MG, UNK
     Route: 060
  4. DIAZEPAM [Suspect]
     Dosage: 20 MG, UNK
     Route: 048
  5. COCAINE [Suspect]
     Dosage: INTERMITTENT USE
  6. CANNABIS [Suspect]

REACTIONS (3)
  - Overdose [Fatal]
  - Toxicity to various agents [Fatal]
  - Foetal death [Unknown]
